FAERS Safety Report 8117018-8 (Version None)
Quarter: 2012Q1

REPORT INFORMATION
  Report Type: 
  Country: None (occurrence: None)
  Receive Date: 20120206
  Receipt Date: 20120127
  Transmission Date: 20120608
  Serious: Yes (Hospitalization)
  Sender: FDA-Public Use
  Company Number: BR-ABBOTT-12P-020-0898808-00

PATIENT
  Sex: Female
  Weight: 68 kg

DRUGS (8)
  1. PREDNISONE [Concomitant]
     Indication: ANKYLOSING SPONDYLITIS
  2. ACYCLOVIR [Concomitant]
     Indication: HERPES OPHTHALMIC
     Route: 048
     Dates: start: 20110801
  3. PREDNISONE [Concomitant]
     Indication: ARTHRALGIA
     Route: 048
     Dates: start: 20110301
  4. HYDROCHLOROTHIAZIDE [Concomitant]
     Indication: HYPERTENSION
     Route: 048
     Dates: start: 20110301
  5. HUMIRA [Suspect]
     Indication: ANKYLOSING SPONDYLITIS
     Route: 058
     Dates: start: 20111023
  6. ANTI-INFLAMMATORY (DICLOFENAC SODIUM) [Suspect]
     Indication: PRODUCT USED FOR UNKNOWN INDICATION
  7. ATENOLOL [Concomitant]
     Indication: HYPERTENSION
     Route: 048
     Dates: start: 20111001
  8. CALCIUM [Concomitant]
     Indication: OSTEOPOROSIS PROPHYLAXIS
     Route: 048
     Dates: start: 20111101

REACTIONS (3)
  - MALAISE [None]
  - RENAL CYST [None]
  - MUSCLE SPASMS [None]
